FAERS Safety Report 18058322 (Version 3)
Quarter: 2020Q3

REPORT INFORMATION
  Report Type: Spontaneous
  Country: JP (occurrence: JP)
  Receive Date: 20200723
  Receipt Date: 20200827
  Transmission Date: 20201103
  Serious: No
  Sender: FDA-Public Use
  Company Number: JP-CELLTRION INC.-2020JP024517

PATIENT

DRUGS (1)
  1. TRASTUZUMAB BS FOR I.V. INFUSION [NK] [Suspect]
     Active Substance: TRASTUZUMAB
     Indication: CERVIX CARCINOMA
     Dosage: UNK
     Route: 065

REACTIONS (1)
  - Off label use [Unknown]
